FAERS Safety Report 16071750 (Version 3)
Quarter: 2020Q1

REPORT INFORMATION
  Report Type: Report from Study
  Country: CA (occurrence: CA)
  Receive Date: 20190314
  Receipt Date: 20200228
  Transmission Date: 20200409
  Serious: Yes (Other)
  Sender: FDA-Public Use
  Company Number: CA-JNJFOC-20190239534

PATIENT
  Age: 54 Year
  Sex: Female
  Weight: 93 kg

DRUGS (1)
  1. SIMPONI ARIA [Suspect]
     Active Substance: GOLIMUMAB
     Indication: RHEUMATOID ARTHRITIS
     Dosage: STRENGTH = 50 MG
     Route: 042
     Dates: start: 201711

REACTIONS (4)
  - Kidney infection [Recovered/Resolved]
  - Cholecystitis infective [Recovered/Resolved]
  - Off label use [Unknown]
  - Incorrect dose administered [Unknown]

NARRATIVE: CASE EVENT DATE: 2019
